FAERS Safety Report 9523794 (Version 2)
Quarter: 2013Q3

REPORT INFORMATION
  Report Type: Spontaneous
  Country: NL (occurrence: NL)
  Receive Date: 20130916
  Receipt Date: 20130924
  Transmission Date: 20140515
  Serious: Yes (Death)
  Sender: FDA-Public Use
  Company Number: NL-AMGEN-NLDSP2013064020

PATIENT
  Age: 72 Year
  Sex: Male

DRUGS (11)
  1. XGEVA [Suspect]
     Indication: PRODUCT USED FOR UNKNOWN INDICATION
     Dosage: 120, Q4WK
     Route: 065
     Dates: start: 2013
  2. SIMVASTATINE [Concomitant]
     Dosage: 20 MG, FO
  3. ENALAPRIL MALEATE [Concomitant]
     Dosage: 40 MG, SDZ, UNK
  4. AMLODIPINE [Concomitant]
     Dosage: 10 MG, PATCH, MAL, UNK
  5. METOPROLOL SUCCINATE [Concomitant]
     Dosage: 50 SDZ, RET
  6. FOLIC ACID [Concomitant]
     Dosage: 5 MG, PATCH UNK
  7. FRAXODI [Concomitant]
     Dosage: 11400IE/0.6 ML, WWSP, UNK
  8. METFORMIN HYDROCHLORIDE [Concomitant]
     Dosage: 850 MG, CF, UNK
  9. NOVOMIX [Concomitant]
     Dosage: 3 ML/300E, UNK
  10. METOCLOPRAMIDE HYDROCHLORIDE [Concomitant]
     Dosage: 10 MG, PATCH, UNK
  11. CALCICHEW D3 [Concomitant]
     Dosage: 500 MG/400 IE, UNK

REACTIONS (1)
  - Death [Fatal]
